FAERS Safety Report 23775028 (Version 1)
Quarter: 2024Q2

REPORT INFORMATION
  Report Type: Spontaneous
  Country: US (occurrence: None)
  Receive Date: 20240423
  Receipt Date: 20240423
  Transmission Date: 20240716
  Serious: Yes (Disabling)
  Sender: FDA-Public Use
  Company Number: None

PATIENT
  Age: 41 Year
  Sex: Female
  Weight: 108 kg

DRUGS (1)
  1. MONTELUKAST SODIUM [Suspect]
     Active Substance: MONTELUKAST SODIUM
     Indication: Multiple allergies
     Dates: start: 20230301, end: 20230415

REACTIONS (5)
  - Drug withdrawal syndrome [None]
  - Migraine [None]
  - Nystagmus [None]
  - Vertigo [None]
  - Alice in wonderland syndrome [None]

NARRATIVE: CASE EVENT DATE: 20230415
